FAERS Safety Report 15065134 (Version 1)
Quarter: 2018Q2

REPORT INFORMATION
  Report Type: Report from Study
  Country: MX (occurrence: MX)
  Receive Date: 20180626
  Receipt Date: 20180626
  Transmission Date: 20180711
  Serious: Yes (Death)
  Sender: FDA-Public Use
  Company Number: MX-UCBSA-2018027043

PATIENT
  Sex: Female

DRUGS (3)
  1. LACOSAMIDE. [Suspect]
     Active Substance: LACOSAMIDE
     Indication: OFF LABEL USE
  2. IRESSA [Concomitant]
     Active Substance: GEFITINIB
     Indication: BRAIN NEOPLASM
     Dosage: UNK
     Dates: start: 201701, end: 201709
  3. LACOSAMIDE. [Suspect]
     Active Substance: LACOSAMIDE
     Indication: BRAIN NEOPLASM
     Dosage: UNK
     Route: 048
     Dates: start: 2017, end: 20170918

REACTIONS (2)
  - Brain neoplasm [Fatal]
  - Off label use [Unknown]

NARRATIVE: CASE EVENT DATE: 2017
